FAERS Safety Report 15248180 (Version 1)
Quarter: 2018Q3

REPORT INFORMATION
  Report Type: Spontaneous
  Country: US (occurrence: US)
  Receive Date: 20180715
  Receipt Date: 20180715
  Transmission Date: 20181010
  Serious: Yes (Other)
  Sender: FDA-Public Use
  Company Number: None

PATIENT
  Age: 27 Year
  Sex: Female
  Weight: 58.5 kg

DRUGS (12)
  1. INVEGA [Concomitant]
     Active Substance: PALIPERIDONE
  2. PRO BIODIC [Concomitant]
  3. REVIA [Concomitant]
     Active Substance: NALTREXONE HYDROCHLORIDE
  4. NORTRIPTYLINE [Concomitant]
     Active Substance: NORTRIPTYLINE
  5. TOPAMAX [Concomitant]
     Active Substance: TOPIRAMATE
  6. KEPPRA [Concomitant]
     Active Substance: LEVETIRACETAM
  7. MULTI VITAMINS [Concomitant]
     Active Substance: VITAMINS
  8. POTASSIUM [Concomitant]
     Active Substance: POTASSIUM
  9. PEPCID [Concomitant]
     Active Substance: FAMOTIDINE
  10. MAGNESIUM OXIDE. [Concomitant]
     Active Substance: MAGNESIUM OXIDE
  11. CHANTIX [Suspect]
     Active Substance: VARENICLINE TARTRATE
     Indication: SMOKING CESSATION THERAPY
     Dosage: ?          QUANTITY:53 TABLET(S);?
     Route: 048
  12. NEURONTIN [Concomitant]
     Active Substance: GABAPENTIN

REACTIONS (2)
  - Hallucination, visual [None]
  - Delusion [None]

NARRATIVE: CASE EVENT DATE: 20180418
